FAERS Safety Report 14233322 (Version 1)
Quarter: 2017Q4

REPORT INFORMATION
  Report Type: Spontaneous
  Country: US (occurrence: US)
  Receive Date: 20171129
  Receipt Date: 20171129
  Transmission Date: 20180321
  Serious: No
  Sender: FDA-Public Use
  Company Number: US-APOTEX-2017AP020304

PATIENT
  Age: 72 Year
  Sex: Male

DRUGS (1)
  1. NICOTINE TRANSDERMAL SYSTEM [Suspect]
     Active Substance: NICOTINE
     Indication: LUNG DISORDER
     Dosage: UNK
     Route: 062
     Dates: start: 201709, end: 201709

REACTIONS (3)
  - Malaise [Recovered/Resolved]
  - Drug ineffective [Unknown]
  - Nightmare [Recovered/Resolved]

NARRATIVE: CASE EVENT DATE: 201709
